FAERS Safety Report 7367783-2 (Version None)
Quarter: 2011Q1

REPORT INFORMATION
  Report Type: 
  Country: None (occurrence: None)
  Receive Date: 20110322
  Receipt Date: 20110317
  Transmission Date: 20110831
  Serious: Yes (Other)
  Sender: FDA-Public Use
  Company Number: US-ABBOTT-11P-163-0705624-00

PATIENT
  Sex: Female
  Weight: 74.91 kg

DRUGS (17)
  1. PROPRANOLOL [Concomitant]
     Indication: HYPERTENSION
  2. VITAMIN D [Concomitant]
     Indication: PRODUCT USED FOR UNKNOWN INDICATION
  3. ASPIRIN [Concomitant]
     Indication: PRODUCT USED FOR UNKNOWN INDICATION
  4. REGLAN [Suspect]
     Indication: GASTROOESOPHAGEAL REFLUX DISEASE
     Dates: start: 20060101, end: 20100401
  5. METHOTREXATE [Concomitant]
     Indication: RHEUMATOID ARTHRITIS
  6. METHYLPREDNISOLONE [Concomitant]
     Indication: PRODUCT USED FOR UNKNOWN INDICATION
  7. ASTEPRO [Concomitant]
     Indication: HYPERSENSITIVITY
  8. FOLIC ACID [Concomitant]
     Indication: PRODUCT USED FOR UNKNOWN INDICATION
     Dosage: 2.2MG DAILY
  9. VITAMIN E [Concomitant]
     Indication: PRODUCT USED FOR UNKNOWN INDICATION
  10. ADVAIR DISKUS 100/50 [Concomitant]
     Indication: HYPERSENSITIVITY
  11. PLENDIL [Concomitant]
     Indication: HYPERTENSION
  12. ADVAIR DISKUS 100/50 [Concomitant]
     Indication: ASTHMA
     Dosage: 250/50
     Route: 055
  13. GABAPENTIN [Concomitant]
     Indication: PAIN
  14. AVAPRO [Concomitant]
     Indication: GASTROOESOPHAGEAL REFLUX DISEASE
  15. HUMIRA [Suspect]
     Indication: RHEUMATOID ARTHRITIS
     Dates: start: 20050101
  16. SIMVASTATIN [Concomitant]
     Indication: BLOOD CHOLESTEROL INCREASED
  17. ASTEPRO [Concomitant]
     Indication: ASTHMA
     Route: 045

REACTIONS (13)
  - TARDIVE DYSKINESIA [None]
  - HYPERSENSITIVITY [None]
  - BACK PAIN [None]
  - GASTRIC ULCER [None]
  - NASOPHARYNGITIS [None]
  - DIABETES MELLITUS [None]
  - ASTHMA [None]
  - HEADACHE [None]
  - ORAL CANDIDIASIS [None]
  - COUGH [None]
  - OROPHARYNGEAL PAIN [None]
  - JOINT INJURY [None]
  - MOVEMENT DISORDER [None]
